FAERS Safety Report 7890019-0 (Version None)
Quarter: 2011Q4

REPORT INFORMATION
  Report Type: 
  Country: None (occurrence: None)
  Receive Date: 20111103
  Receipt Date: 20111027
  Transmission Date: 20120403
  Serious: Yes (Other)
  Sender: FDA-Public Use
  Company Number: PHEH2009US16946

PATIENT
  Sex: Female
  Weight: 63.492 kg

DRUGS (6)
  1. AREDIA [Suspect]
  2. WARFARIN SODIUM [Concomitant]
  3. FEMARA [Concomitant]
  4. GABAPENTIN [Concomitant]
  5. FORTICAL /KOR/ [Concomitant]
  6. ZOMETA [Suspect]

REACTIONS (23)
  - THYROID NEOPLASM [None]
  - CARDIAC MURMUR [None]
  - VERTIGO [None]
  - OSTEONECROSIS OF JAW [None]
  - VENOUS THROMBOSIS [None]
  - INTERVERTEBRAL DISC DEGENERATION [None]
  - SPINAL OSTEOARTHRITIS [None]
  - CAROTID BRUIT [None]
  - GENERAL PHYSICAL HEALTH DETERIORATION [None]
  - PALPITATIONS [None]
  - TINNITUS [None]
  - HEART VALVE INCOMPETENCE [None]
  - METASTASES TO SPINE [None]
  - DYSPHAGIA [None]
  - VISION BLURRED [None]
  - ANXIETY [None]
  - GOITRE [None]
  - CAROTID ARTERY STENOSIS [None]
  - NYSTAGMUS [None]
  - PAIN [None]
  - ANHEDONIA [None]
  - AORTIC VALVE SCLEROSIS [None]
  - CERUMEN IMPACTION [None]
